FAERS Safety Report 8296617-7 (Version None)
Quarter: 2012Q2

REPORT INFORMATION
  Report Type: 
  Country: None (occurrence: None)
  Receive Date: 20120418
  Receipt Date: 20120418
  Transmission Date: 20120825
  Serious: Yes (Hospitalization)
  Sender: FDA-Public Use
  Company Number: None

PATIENT
  Age: 71 Year
  Sex: Male
  Weight: 70.306 kg

DRUGS (12)
  1. TOPAMAX [Concomitant]
     Route: 048
  2. REMERON [Concomitant]
  3. BACLOFEN [Concomitant]
     Route: 048
  4. CARDURA [Concomitant]
  5. DEPAKOTE [Concomitant]
     Route: 048
  6. VALIUM [Concomitant]
     Route: 048
  7. EFFEXOR XR [Concomitant]
     Route: 048
  8. PROTONIX [Concomitant]
     Route: 048
  9. NUCYNTA ER [Suspect]
     Indication: BACK PAIN
     Dates: start: 20120112, end: 20120118
  10. PROZAC [Concomitant]
     Route: 048
  11. DIOVAN [Concomitant]
  12. LIPITOR [Concomitant]
     Route: 048

REACTIONS (1)
  - SEROTONIN SYNDROME [None]
